FAERS Safety Report 9601878 (Version 1)
Quarter: 2013Q4

REPORT INFORMATION
  Report Type: Spontaneous
  Country: BR (occurrence: None)
  Receive Date: 20131002
  Receipt Date: 20131002
  Transmission Date: 20140711
  Serious: Yes (Other)
  Sender: FDA-Public Use
  Company Number: SYM-2013-10938

PATIENT
  Age: 43 Year
  Sex: Female
  Weight: 80 kg

DRUGS (1)
  1. TIMOPTOL [Suspect]
     Indication: PRODUCT USED FOR UNKNOWN INDICATION
     Route: 047

REACTIONS (7)
  - Heart rate increased [None]
  - Agitation [None]
  - Hypertension [None]
  - Blood cholesterol increased [None]
  - Cholecystectomy [None]
  - Therapy cessation [None]
  - Intraocular pressure increased [None]
